FAERS Safety Report 14891810 (Version 1)
Quarter: 2018Q2

REPORT INFORMATION
  Report Type: Spontaneous
  Country: BR (occurrence: BR)
  Receive Date: 20180514
  Receipt Date: 20180514
  Transmission Date: 20180711
  Serious: Yes (Hospitalization)
  Sender: FDA-Public Use
  Company Number: BR-ABBVIE-18P-020-2245545-00

PATIENT
  Sex: Female
  Weight: 60 kg

DRUGS (4)
  1. DEPAKOTE ER [Suspect]
     Active Substance: DIVALPROEX SODIUM
     Indication: SEIZURE
     Dosage: DAILY DOSE: IN THE EVENING
     Route: 048
     Dates: start: 20180126
  2. DEPAKOTE ER [Suspect]
     Active Substance: DIVALPROEX SODIUM
     Indication: MEMORY IMPAIRMENT
     Dosage: IN THE EVENING
     Route: 065
     Dates: end: 20180126
  3. DEPAKOTE ER [Concomitant]
     Active Substance: DIVALPROEX SODIUM
     Indication: PRODUCT USED FOR UNKNOWN INDICATION
     Dosage: DAILY DOSE: 2 AT NIGHT
  4. DEPAKOTE ER [Concomitant]
     Active Substance: DIVALPROEX SODIUM
     Dosage: DAILY DOSE: 2 AT NIGHT

REACTIONS (7)
  - Drug ineffective [Unknown]
  - Feeling abnormal [Unknown]
  - Product quality issue [Unknown]
  - Memory impairment [Recovered/Resolved]
  - Dizziness [Recovering/Resolving]
  - Condition aggravated [Recovered/Resolved]
  - Seizure [Recovered/Resolved]

NARRATIVE: CASE EVENT DATE: 20180126
